FAERS Safety Report 5726484-4 (Version None)
Quarter: 2008Q2

REPORT INFORMATION
  Report Type: 
  Country: None (occurrence: None)
  Receive Date: 20080502
  Receipt Date: 20080425
  Transmission Date: 20081010
  Serious: Yes (Hospitalization, Other)
  Sender: FDA-Public Use
  Company Number: US-AMGEN-US270608

PATIENT
  Sex: Female
  Weight: 96.2 kg

DRUGS (10)
  1. VECTIBIX [Suspect]
     Indication: COLORECTAL CANCER
     Route: 042
     Dates: start: 20071203, end: 20080310
  2. METFORMIN HCL [Concomitant]
  3. ALLOPURINOL [Concomitant]
  4. HYDROCHLOROTHIAZIDE [Concomitant]
  5. LISINOPRIL [Concomitant]
  6. FENTANYL CITRATE [Concomitant]
     Route: 062
  7. LORTAB [Concomitant]
  8. LEVOTHYROXINE SODIUM [Concomitant]
  9. LYRICA [Concomitant]
  10. CELEXA [Concomitant]

REACTIONS (5)
  - ASTHENIA [None]
  - FATIGUE [None]
  - HYPOCALCAEMIA [None]
  - HYPOMAGNESAEMIA [None]
  - NEURALGIA [None]
